FAERS Safety Report 4378820-1 (Version None)
Quarter: 2004Q2

REPORT INFORMATION
  Report Type: 
  Country: None (occurrence: None)
  Receive Date: 20040610
  Receipt Date: 20040602
  Transmission Date: 20050107
  Serious: Yes (Disabling)
  Sender: FDA-Public Use
  Company Number: CEL-2004-01183-SLO

PATIENT
  Age: 40 Year
  Sex: Male

DRUGS (1)
  1. METHYLPHENIDATE HCL [Suspect]
     Dosage: 10MG THREE TIMES DAILY, ORALLY
     Route: 048

REACTIONS (1)
  - BLINDNESS TRANSIENT [None]
